FAERS Safety Report 6503463-0 (Version None)
Quarter: 2009Q4

REPORT INFORMATION
  Report Type: 
  Country: None (occurrence: None)
  Receive Date: 20091217
  Receipt Date: 20091211
  Transmission Date: 20100525
  Serious: Yes (Hospitalization)
  Sender: FDA-Public Use
  Company Number: JP-BAYER-200812881BYL

PATIENT
  Age: 65 Year
  Sex: Female

DRUGS (11)
  1. NEXAVAR [Suspect]
     Indication: RENAL CELL CARCINOMA
     Dosage: UNIT DOSE: 200 MG
     Route: 048
     Dates: start: 20081110, end: 20081117
  2. URSO 250 [Concomitant]
     Route: 048
  3. INDERAL [Concomitant]
     Route: 048
  4. MELBIN [Concomitant]
     Route: 048
  5. AMARYL [Concomitant]
     Route: 048
  6. FLUITRAN [Concomitant]
     Route: 048
  7. OMEPRAL [Concomitant]
     Route: 048
  8. DIOVAN [Concomitant]
     Route: 048
  9. ATELEC [Concomitant]
     Route: 048
  10. BEZATOL SR [Concomitant]
     Route: 048
  11. BASEN OD [Concomitant]
     Route: 048

REACTIONS (1)
  - PANCYTOPENIA [None]
